FAERS Safety Report 6978554-0 (Version None)
Quarter: 2010Q3

REPORT INFORMATION
  Report Type: 
  Country: None (occurrence: None)
  Receive Date: 20100913
  Receipt Date: 20100908
  Transmission Date: 20110219
  Serious: Yes (Hospitalization)
  Sender: FDA-Public Use
  Company Number: US-GILEAD-2010-0031326

PATIENT
  Sex: Female

DRUGS (17)
  1. LETAIRIS [Suspect]
     Indication: PULMONARY ARTERIAL HYPERTENSION
     Route: 048
     Dates: start: 20100225
  2. NORVASC [Concomitant]
  3. FLECTOR [Concomitant]
  4. PREDNISONE [Concomitant]
  5. CLARINEX [Concomitant]
  6. NASACORT [Concomitant]
  7. POTASSIUM CHLORIDE [Concomitant]
  8. LYCOPENE [Concomitant]
  9. VITAMIN TAB [Concomitant]
  10. CALCIUM [Concomitant]
  11. VITAMIN B COMPLEX CAP [Concomitant]
  12. MUCINEX [Concomitant]
  13. VITAMIN E [Concomitant]
  14. SELENIUM [Concomitant]
  15. CELEBREX [Concomitant]
  16. PAXIL [Concomitant]
  17. COENZYME Q10 [Concomitant]

REACTIONS (4)
  - CHEST PAIN [None]
  - CHRONIC OBSTRUCTIVE PULMONARY DISEASE [None]
  - COUGH [None]
  - DYSPNOEA [None]
